FAERS Safety Report 7211538-6 (Version None)
Quarter: 2011Q1

REPORT INFORMATION
  Report Type: 
  Country: None (occurrence: None)
  Receive Date: 20110105
  Receipt Date: 20101223
  Transmission Date: 20110831
  Serious: Yes (Hospitalization, Other)
  Sender: FDA-Public Use
  Company Number: US-ELI_LILLY_AND_COMPANY-US201012006198

PATIENT
  Age: 45 Year
  Sex: Female

DRUGS (3)
  1. EFFIENT [Suspect]
     Indication: STENT PLACEMENT
     Dosage: 60 MG, UNK
  2. EFFIENT [Suspect]
     Dosage: 10 MG, DAILY (1/D)
  3. ASPIRIN [Concomitant]
     Dosage: 325 MG, UNK

REACTIONS (2)
  - MYOCARDIAL INFARCTION [None]
  - DRUG INEFFECTIVE [None]
